FAERS Safety Report 5995511-1 (Version None)
Quarter: 2008Q4

REPORT INFORMATION
  Report Type: 
  Country: None (occurrence: None)
  Receive Date: 20081210
  Receipt Date: 20081202
  Transmission Date: 20090506
  Serious: Yes (Hospitalization, Other)
  Sender: FDA-Public Use
  Company Number: 1000001811

PATIENT
  Age: 48 Year
  Sex: Female

DRUGS (2)
  1. CARBAMAZEPINE [Suspect]
     Indication: EPILEPSY
     Dosage: 1500 MILLIGRAM (1500 MG,D);  750 (750 MG,D)
  2. PREGABALIN [Suspect]
     Indication: EPILEPSY
     Dosage: 300 MG (300 MG,1 IN 1 D); 150 MG (150 MG, 1 IN 1 D)

REACTIONS (8)
  - AMNESTIC DISORDER [None]
  - CENTRAL NERVOUS SYSTEM LESION [None]
  - COGNITIVE DISORDER [None]
  - CYTOTOXIC OEDEMA [None]
  - DISTURBANCE IN ATTENTION [None]
  - GAMMA-GLUTAMYLTRANSFERASE INCREASED [None]
  - MENTAL DISORDER DUE TO A GENERAL MEDICAL CONDITION [None]
  - THROMBOCYTHAEMIA [None]
